FAERS Safety Report 8328676-7 (Version None)
Quarter: 2012Q2

REPORT INFORMATION
  Report Type: 
  Country: None (occurrence: None)
  Receive Date: 20120502
  Receipt Date: 20100907
  Transmission Date: 20120825
  Serious: No
  Sender: FDA-Public Use
  Company Number: US-TEVA-2010004381

PATIENT
  Sex: Male
  Weight: 68.1 kg

DRUGS (5)
  1. NUVIGIL [Suspect]
     Indication: NARCOLEPSY
     Dosage: 250 MILLIGRAM;
     Route: 048
     Dates: start: 20100622
  2. CLONAZEPAM [Concomitant]
     Indication: SLEEP DISORDER
     Route: 048
     Dates: start: 20100101
  3. XYREM [Concomitant]
     Indication: SLEEP DISORDER
     Dosage: 4.5 MILLIGRAM;
     Route: 048
     Dates: start: 20100811
  4. BISOPROLOL FUMARATE [Concomitant]
     Dates: start: 20100101
  5. SERTRALINE HYDROCHLORIDE [Concomitant]
     Indication: ANXIETY
     Dates: start: 20100101

REACTIONS (1)
  - ACNE [None]
